FAERS Safety Report 6543322-0 (Version None)
Quarter: 2010Q1

REPORT INFORMATION
  Report Type: 
  Country: None (occurrence: None)
  Receive Date: 20100120
  Receipt Date: 20100113
  Transmission Date: 20100710
  Serious: Yes (Other)
  Sender: FDA-Public Use
  Company Number: US-ROCHE-674202

PATIENT
  Sex: Female

DRUGS (5)
  1. BONIVA [Suspect]
     Indication: OSTEOPOROSIS
     Route: 042
     Dates: start: 20071004, end: 20091118
  2. TRICOR [Concomitant]
  3. BENICAR [Concomitant]
  4. ZETIA [Concomitant]
  5. PRILOSEC [Concomitant]

REACTIONS (1)
  - SPINAL COLUMN STENOSIS [None]
